FAERS Safety Report 6897136-2 (Version None)
Quarter: 2010Q3

REPORT INFORMATION
  Report Type: 
  Country: None (occurrence: None)
  Receive Date: 20100802
  Receipt Date: 20100723
  Transmission Date: 20110219
  Serious: Yes (Hospitalization)
  Sender: FDA-Public Use
  Company Number: BR-GENENTECH-302688

PATIENT
  Sex: Female
  Weight: 68 kg

DRUGS (6)
  1. RITUXIMAB [Suspect]
     Indication: SYSTEMIC LUPUS ERYTHEMATOSUS
     Dosage: UNK
     Route: 042
     Dates: start: 20100417, end: 20100101
  2. VASOPRIL [Concomitant]
     Indication: BLOOD PRESSURE
     Dosage: 20 MG, UNK
  3. METHYLDOPA [Concomitant]
     Indication: BLOOD PRESSURE
     Dosage: UNK
  4. NORVASC [Concomitant]
     Indication: BLOOD PRESSURE
     Dosage: UNK
  5. SERTRALINE HYDROCHLORIDE [Concomitant]
     Indication: DEPRESSION
     Dosage: UNK
  6. SOMALIUM [Concomitant]
     Indication: DEPRESSION
     Dosage: 3 MG, UNK

REACTIONS (1)
  - RENAL FAILURE [None]
